FAERS Safety Report 5379732-7 (Version None)
Quarter: 2007Q3

REPORT INFORMATION
  Report Type: 
  Country: None (occurrence: None)
  Receive Date: 20070706
  Receipt Date: 20070628
  Transmission Date: 20080115
  Serious: Yes (Other)
  Sender: FDA-Public Use
  Company Number: PHEH2007US09415

PATIENT
  Age: 84 Year
  Sex: Female

DRUGS (1)
  1. LOPRESSOR [Suspect]
     Indication: HYPERTENSION
     Route: 065
     Dates: end: 19870101

REACTIONS (3)
  - AGORAPHOBIA [None]
  - LOSS OF CONSCIOUSNESS [None]
  - PANCREATIC DISORDER [None]
